FAERS Safety Report 24614512 (Version 1)
Quarter: 2024Q4

REPORT INFORMATION
  Report Type: Spontaneous
  Country: CH (occurrence: CH)
  Receive Date: 20241113
  Receipt Date: 20241113
  Transmission Date: 20250114
  Serious: Yes (Hospitalization, Other)
  Sender: PFIZER
  Company Number: None

PATIENT
  Age: 49 Year
  Sex: Male
  Weight: 57 kg

DRUGS (8)
  1. ADCETRIS [Suspect]
     Active Substance: BRENTUXIMAB VEDOTIN
     Indication: Hodgkin^s disease
     Dosage: 108 MILLIGRAM, Q3WEEKS
     Route: 042
     Dates: start: 20240902
  2. DACIN [CLINDAMYCIN HYDROCHLORIDE] [Concomitant]
     Dosage: 424 MILLIGRAM
     Route: 065
     Dates: start: 20240904
  3. MESNA [Concomitant]
     Active Substance: MESNA
     Dosage: 1200 MILLIGRAM
     Route: 065
     Dates: start: 20240903
  4. CYCLOPHOSPHAMIDE [Concomitant]
     Active Substance: CYCLOPHOSPHAMIDE
     Dosage: 2119 MILLIGRAM
     Route: 065
     Dates: start: 20240903
  5. DEXAMETHASONE [Concomitant]
     Active Substance: DEXAMETHASONE
     Dosage: 40 MILLIGRAM
     Route: 065
     Dates: start: 20240903
  6. DOXORUBICIN [Concomitant]
     Active Substance: DOXORUBICIN
     Dosage: 68 MILLIGRAM
     Route: 065
     Dates: start: 20240903
  7. ETOPOPHOS [Concomitant]
     Active Substance: ETOPOSIDE PHOSPHATE
     Dosage: 254 MILLIGRAM
     Route: 065
     Dates: start: 20240903
  8. NEULASTA [Concomitant]
     Active Substance: PEGFILGRASTIM
     Dosage: 6 MILLIGRAM
     Route: 065
     Dates: start: 20240906

REACTIONS (3)
  - Enteritis [Recovered/Resolved]
  - Thrombocytopenia [Recovered/Resolved]
  - Neutropenia [Recovered/Resolved]

NARRATIVE: CASE EVENT DATE: 20240908
